FAERS Safety Report 18579498 (Version 1)
Quarter: 2020Q4

REPORT INFORMATION
  Report Type: Spontaneous
  Country: DE (occurrence: DE)
  Receive Date: 20201204
  Receipt Date: 20201204
  Transmission Date: 20210114
  Serious: Yes (Life-Threatening, Other)
  Sender: FDA-Public Use
  Company Number: DE-PFIZER INC-2020474408

PATIENT
  Age: 860 Month
  Sex: Female

DRUGS (10)
  1. ARIMIDEX [Suspect]
     Active Substance: ANASTROZOLE
     Dosage: UNK
     Route: 048
  2. FULVESTRANT. [Suspect]
     Active Substance: FULVESTRANT
     Dosage: 500 MG, MONTHLY
     Route: 030
     Dates: start: 201711, end: 201908
  3. XGEVA [Concomitant]
     Active Substance: DENOSUMAB
     Dosage: 120 MG, FREQ:4 WK
     Route: 042
     Dates: start: 201908, end: 202008
  4. BEVACIZUMAB. [Concomitant]
     Active Substance: BEVACIZUMAB
     Dosage: 15 MG/KG, EVERY 3 WEEKS
     Route: 042
     Dates: start: 201908, end: 202008
  5. PALBOCICLIB [Suspect]
     Active Substance: PALBOCICLIB
     Dosage: 125 MG/DAY 1-14 Q3
     Route: 048
     Dates: start: 201711, end: 201908
  6. TAMOXIFEN [Suspect]
     Active Substance: TAMOXIFEN
     Dosage: 30 MG, 1X/DAY
     Route: 048
     Dates: start: 201505, end: 201511
  7. DENOSUMAB [Concomitant]
     Active Substance: DENOSUMAB
     Dosage: 120 MG, FREQ:4 WK
     Dates: start: 201711, end: 201908
  8. EXEMESTANE. [Concomitant]
     Active Substance: EXEMESTANE
     Dosage: 25 MG, 1X/DAY
     Route: 048
     Dates: start: 201511, end: 201711
  9. CAPECITABINE. [Concomitant]
     Active Substance: CAPECITABINE
     Dosage: 1250 MG/M2 DAY 1-14 EVERY THREE WEEKS
     Dates: start: 201908, end: 202008
  10. EVEROLIMUS. [Concomitant]
     Active Substance: EVEROLIMUS
     Dosage: 10 MG, 1X/DAY
     Route: 048
     Dates: start: 201511, end: 201711

REACTIONS (6)
  - Aortic aneurysm [Unknown]
  - Glaucoma [Unknown]
  - Hypertension [Unknown]
  - Atrial fibrillation [Unknown]
  - Hypothyroidism [Unknown]
  - Neoplasm progression [Unknown]

NARRATIVE: CASE EVENT DATE: 201501
